FAERS Safety Report 23379546 (Version 1)
Quarter: 2024Q1

REPORT INFORMATION
  Report Type: Report from Study
  Country: US (occurrence: US)
  Receive Date: 20240108
  Receipt Date: 20240108
  Transmission Date: 20240410
  Serious: Yes (Hospitalization)
  Sender: FDA-Public Use
  Company Number: US-Eisai-EC-2024-156647

PATIENT
  Age: 72 Year
  Sex: Female

DRUGS (4)
  1. LENVIMA [Suspect]
     Active Substance: LENVATINIB
     Indication: Endometrial cancer
     Dosage: THERAPY STOPPED SOMEWHERE IN --2023?TAKING THREE 12 MG TABLETS.
     Route: 048
     Dates: start: 20231122
  2. LENVIMA [Suspect]
     Active Substance: LENVATINIB
     Dosage: PATIENT^S DOSE OF LENVIMA HAS BEEN DECREASED TO 8MG/DAY DUE TO EXPERIENCING DIARRHEA WHILE TAKING TH
     Route: 048
     Dates: start: 2023
  3. LENVIMA [Suspect]
     Active Substance: LENVATINIB
     Dosage: PATIENT^S DOSE OF LENVIMA HAS BEEN DECREASED TO 8MG/DAY DUE TO EXPERIENCING DIARRHEA WHILE TAKING TH
     Route: 048
     Dates: start: 2023
  4. LENVIMA [Suspect]
     Active Substance: LENVATINIB
     Dosage: PATIENT ADVISED TO TAKE 4MG BY ONCOLOGIST
     Route: 048
     Dates: start: 2023

REACTIONS (2)
  - Hypertension [Unknown]
  - Pleural effusion [Unknown]

NARRATIVE: CASE EVENT DATE: 20231201
